FAERS Safety Report 6845535-7 (Version None)
Quarter: 2010Q3

REPORT INFORMATION
  Report Type: 
  Country: None (occurrence: None)
  Receive Date: 20100715
  Receipt Date: 20100708
  Transmission Date: 20110219
  Serious: Yes (Hospitalization)
  Sender: FDA-Public Use
  Company Number: PHHO2009GB15974

PATIENT
  Sex: Male
  Weight: 77 kg

DRUGS (8)
  1. AFINITOR [Suspect]
     Indication: METASTATIC RENAL CELL CARCINOMA
     Dosage: 10 MG
     Route: 048
     Dates: start: 20090729, end: 20091208
  2. AFINITOR [Suspect]
     Dosage: 5 MG
     Route: 048
     Dates: start: 20091209
  3. AFINITOR [Suspect]
     Dosage: 5 MG, QOD
     Route: 048
     Dates: start: 20100113
  4. PREDNISOLONE [Suspect]
     Indication: PNEUMONITIS
     Dosage: 60 MG, DAILY
     Route: 048
     Dates: start: 20091209, end: 20091221
  5. PREDNISOLONE [Suspect]
     Dosage: 30 MG, DAILY
     Route: 048
     Dates: start: 20091222
  6. GABAPENTIN [Concomitant]
     Indication: NEURALGIA
  7. DILTIAZEM [Concomitant]
     Indication: HYPERTENSION
  8. SIMVASTATIN [Concomitant]
     Indication: LOWER RESPIRATORY TRACT INFECTION

REACTIONS (4)
  - FATIGUE [None]
  - HYPERGLYCAEMIA [None]
  - MALAISE [None]
  - PNEUMONITIS [None]
